FAERS Safety Report 26005787 (Version 1)
Quarter: 2025Q4

REPORT INFORMATION
  Report Type: Spontaneous
  Country: US (occurrence: None)
  Receive Date: 20251105
  Receipt Date: 20251105
  Transmission Date: 20260119
  Serious: Yes (Other)
  Sender: FDA-CTU
  Company Number: None

PATIENT
  Age: 58 Year
  Sex: Female

DRUGS (1)
  1. AMJEVITA [Suspect]
     Active Substance: ADALIMUMAB-ATTO
     Dosage: FREQUENCY : EVERY OTHER WEEK;?

REACTIONS (4)
  - Arthralgia [None]
  - Blister [None]
  - Abdominal discomfort [None]
  - Skin burning sensation [None]
